FAERS Safety Report 25989278 (Version 1)
Quarter: 2025Q4

REPORT INFORMATION
  Report Type: Report from Study
  Country: US (occurrence: US)
  Receive Date: 20251103
  Receipt Date: 20251103
  Transmission Date: 20260118
  Serious: Yes (Other)
  Sender: ALEXION PHARMACEUTICALS
  Company Number: US-AstraZeneca-CH-00981176A

PATIENT
  Sex: Female

DRUGS (1)
  1. OSIMERTINIB [Suspect]
     Active Substance: OSIMERTINIB
     Route: 065

REACTIONS (11)
  - Cataract [Recovered/Resolved]
  - Asthenia [Unknown]
  - Skin disorder [Unknown]
  - Skin fissures [Unknown]
  - Nail disorder [Unknown]
  - Rash macular [Unknown]
  - Asthenia [Unknown]
  - Lacrimation increased [Unknown]
  - Depression [Unknown]
  - Visual impairment [Unknown]
  - Sexual dysfunction [Unknown]
